FAERS Safety Report 9985584 (Version 1)
Quarter: 2014Q1

REPORT INFORMATION
  Report Type: Report from Study
  Country: US (occurrence: US)
  Receive Date: 20140307
  Receipt Date: 20140307
  Transmission Date: 20141002
  Serious: Yes (Hospitalization, Other)
  Sender: FDA-Public Use
  Company Number: US-ABBVIE-14P-163-1207481-00

PATIENT
  Sex: Male
  Weight: 129.39 kg

DRUGS (9)
  1. HUMIRA [Suspect]
     Indication: RHEUMATOID ARTHRITIS
     Dates: start: 2009, end: 201209
  2. METHOTREXATE [Concomitant]
     Indication: RHEUMATOID ARTHRITIS
  3. FOLIC ACID [Concomitant]
     Indication: VITAMIN SUPPLEMENTATION
  4. MOBIC [Concomitant]
     Indication: RHEUMATOID ARTHRITIS
  5. PREDAXA [Concomitant]
     Indication: CARDIOMYOPATHY
  6. METFORMIN [Concomitant]
     Indication: DIABETES MELLITUS
  7. GLIBURIDE [Concomitant]
     Indication: DIABETES MELLITUS
  8. ASPIRIN [Concomitant]
     Indication: CARDIOMYOPATHY
  9. AMBIEN [Concomitant]
     Indication: INSOMNIA

REACTIONS (10)
  - Hypotension [Recovered/Resolved]
  - Atrial fibrillation [Not Recovered/Not Resolved]
  - Hypertension [Recovered/Resolved]
  - Atrial fibrillation [Recovered/Resolved]
  - Coronary artery occlusion [Recovered/Resolved]
  - Chest pain [Recovered/Resolved]
  - Palpitations [Recovered/Resolved]
  - Arrhythmia [Recovered/Resolved]
  - Arthralgia [Not Recovered/Not Resolved]
  - Ejection fraction decreased [Not Recovered/Not Resolved]
